FAERS Safety Report 5708990-1 (Version None)
Quarter: 2008Q2

REPORT INFORMATION
  Report Type: 
  Country: None (occurrence: None)
  Receive Date: 20080414
  Receipt Date: 20080414
  Transmission Date: 20081010
  Serious: Yes (Other)
  Sender: FDA-Public Use
  Company Number: None

PATIENT
  Age: 23 Year
  Sex: Female
  Weight: 64.4108 kg

DRUGS (1)
  1. CIPROFLOXACIN [Suspect]
     Indication: KIDNEY INFECTION
     Dosage: 500MG TABLETS 2 TIMES DAILY PO
     Route: 048
     Dates: start: 20080319, end: 20080320

REACTIONS (6)
  - ARTHRALGIA [None]
  - CONFUSIONAL STATE [None]
  - DISSOCIATION [None]
  - HYPOAESTHESIA FACIAL [None]
  - LETHARGY [None]
  - TENDON PAIN [None]
